FAERS Safety Report 5898944-7 (Version None)
Quarter: 2008Q3

REPORT INFORMATION
  Report Type: 
  Country: None (occurrence: None)
  Receive Date: 20080925
  Receipt Date: 20080915
  Transmission Date: 20090109
  Serious: Yes (Other)
  Sender: FDA-Public Use
  Company Number: US-PFIZER INC-2008071626

PATIENT
  Sex: Female
  Weight: 100 kg

DRUGS (7)
  1. DEPO-PROVERA SUSPENSION/INJ [Suspect]
     Indication: OFF LABEL USE
     Dosage: FREQ:1ST INJECTION
     Route: 030
     Dates: start: 20080101, end: 20080101
  2. DEPO-PROVERA SUSPENSION/INJ [Suspect]
     Indication: ENDOMETRIOSIS
  3. PRILOSEC [Concomitant]
  4. WELLBUTRIN [Concomitant]
  5. LEXAPRO [Concomitant]
  6. PROVIGIL [Concomitant]
  7. ALL OTHER THERAPEUTIC PRODUCTS [Concomitant]

REACTIONS (4)
  - INJECTION SITE HAEMATOMA [None]
  - INJECTION SITE INFECTION [None]
  - INJECTION SITE INFLAMMATION [None]
  - INJECTION SITE PAIN [None]
